FAERS Safety Report 17726369 (Version 1)
Quarter: 2020Q2

REPORT INFORMATION
  Report Type: Spontaneous
  Country: TH (occurrence: TH)
  Receive Date: 20200430
  Receipt Date: 20200430
  Transmission Date: 20200714
  Serious: Yes (Hospitalization, Other)
  Sender: FDA-Public Use
  Company Number: TH-SUN PHARMACEUTICAL INDUSTRIES LTD-2020R1-244930

PATIENT
  Age: 76 Year
  Sex: Male

DRUGS (8)
  1. THIOPENTHAL [Suspect]
     Active Substance: THIOPENTAL
     Indication: EPILEPSY
  2. LEVETIRACETAM. [Suspect]
     Active Substance: LEVETIRACETAM
     Indication: HAEMANGIOMA
     Dosage: UNK
     Route: 065
  3. LEVETIRACETAM. [Suspect]
     Active Substance: LEVETIRACETAM
     Indication: EPILEPSY
  4. PHENYTOIN. [Suspect]
     Active Substance: PHENYTOIN
     Indication: HAEMANGIOMA
     Dosage: UNK
     Route: 042
  5. LACOSAMIDE. [Suspect]
     Active Substance: LACOSAMIDE
     Indication: EPILEPSY
  6. THIOPENTHAL [Suspect]
     Active Substance: THIOPENTAL
     Indication: HAEMANGIOMA
     Dosage: UNK
     Route: 065
  7. LACOSAMIDE. [Suspect]
     Active Substance: LACOSAMIDE
     Indication: HAEMANGIOMA
     Dosage: UNK
     Route: 065
  8. PHENYTOIN. [Suspect]
     Active Substance: PHENYTOIN
     Indication: EPILEPSY

REACTIONS (2)
  - Haemodynamic instability [Unknown]
  - Drug ineffective [Unknown]
